FAERS Safety Report 8405083 (Version 3)
Quarter: 2012Q4

REPORT INFORMATION
  Report Type: 
  Country: US (occurrence: US)
  Receive Date: 20120214
  Receipt Date: 20121129
  Transmission Date: 20130627
  Serious: Yes (Hospitalization)
  Sender: FDA-Public Use
  Company Number: US-GLAXOSMITHKLINE-A0667329A

PATIENT
  Age: 60 Year
  Sex: Female
  Weight: 86.4 kg

DRUGS (5)
  1. AVANDIA [Suspect]
     Indication: TYPE 2 DIABETES MELLITUS
     Dosage: 4MG Per day
     Route: 048
  2. ASPIRIN [Concomitant]
  3. BENICAR [Concomitant]
  4. ACIPHEX [Concomitant]
  5. ZETIA [Concomitant]

REACTIONS (17)
  - Transient ischaemic attack [Not Recovered/Not Resolved]
  - Coagulopathy [Unknown]
  - Multiple fractures [Unknown]
  - Bone pain [Unknown]
  - Chest pain [Unknown]
  - Arrhythmia [Unknown]
  - Dyspnoea [Unknown]
  - Muscle spasms [Unknown]
  - Weight increased [Unknown]
  - Dizziness [Unknown]
  - Burning sensation [Unknown]
  - Increased tendency to bruise [Unknown]
  - Abnormal sensation in eye [Unknown]
  - Lacrimation increased [Unknown]
  - Pruritus [Unknown]
  - Amnesia [Unknown]
  - Headache [Unknown]
